FAERS Safety Report 5310507-0 (Version None)
Quarter: 2007Q2

REPORT INFORMATION
  Report Type: 
  Country: None (occurrence: None)
  Receive Date: 20070427
  Receipt Date: 20070425
  Transmission Date: 20071010
  Serious: Yes (Hospitalization)
  Sender: FDA-Public Use
  Company Number: JP-ABBOTT-07P-087-0361293-00

PATIENT
  Sex: Female

DRUGS (4)
  1. CLARITHROMYCIN [Suspect]
     Indication: PNEUMONIA
     Route: 048
     Dates: start: 20070112, end: 20070126
  2. CLARITHROMYCIN [Suspect]
     Indication: ACNE
  3. UNACID [Suspect]
     Indication: BRONCHOPNEUMONIA
     Dates: start: 20070117, end: 20070123
  4. LEVOFLOXACIN [Suspect]
     Indication: BRONCHOPNEUMONIA
     Route: 048
     Dates: start: 20070124, end: 20070126

REACTIONS (2)
  - BRONCHOPNEUMONIA [None]
  - ERYTHEMA [None]
